FAERS Safety Report 6029369-1 (Version None)
Quarter: 2009Q1

REPORT INFORMATION
  Report Type: 
  Country: None (occurrence: None)
  Receive Date: 20090105
  Receipt Date: 20081218
  Transmission Date: 20090719
  Serious: Yes (Hospitalization)
  Sender: FDA-Public Use
  Company Number: 310001L08JPN

PATIENT
  Age: 29 Year
  Sex: Female

DRUGS (3)
  1. FOLLITROPIN ALPHA (FOLLITROPIN ALFA) [Suspect]
     Indication: ARTIFICIAL INSEMINATION BY PARTNER
  2. MENOTROPINS [Suspect]
     Indication: ARTIFICIAL INSEMINATION BY PARTNER
  3. CHORIONIC GONADOTROPIN [Suspect]
     Indication: ARTIFICIAL INSEMINATION BY PARTNER

REACTIONS (7)
  - ENTEROCOCCAL INFECTION [None]
  - ESCHERICHIA INFECTION [None]
  - GARDNERELLA INFECTION [None]
  - KLEBSIELLA INFECTION [None]
  - PATHOGEN RESISTANCE [None]
  - PERITONITIS [None]
  - STAPHYLOCOCCAL INFECTION [None]
